FAERS Safety Report 4616887-3 (Version None)
Quarter: 2005Q1

REPORT INFORMATION
  Report Type: 
  Country: None (occurrence: None)
  Receive Date: 20050321
  Receipt Date: 20050307
  Transmission Date: 20050727
  Serious: Yes (Other)
  Sender: FDA-Public Use
  Company Number: 2005041945

PATIENT
  Age: 59 Year
  Sex: Female

DRUGS (2)
  1. CELEBREX [Suspect]
     Indication: ILL-DEFINED DISORDER
     Dosage: 300 MG (300 MG, 1 IN 1 D), ORAL
     Route: 048
  2. NSAID'S (NSAID'S) [Suspect]
     Indication: ILL-DEFINED DISORDER

REACTIONS (2)
  - PEPTIC ULCER [None]
  - STRESS [None]
